FAERS Safety Report 24124387 (Version 2)
Quarter: 2024Q3

REPORT INFORMATION
  Report Type: Report from Study
  Country: CA (occurrence: CA)
  Receive Date: 20240723
  Receipt Date: 20240903
  Transmission Date: 20241016
  Serious: Yes (Other)
  Sender: ABBVIE
  Company Number: CA-ABBVIE-5845716

PATIENT
  Age: 29 Year
  Sex: Female

DRUGS (2)
  1. RINVOQ [Suspect]
     Active Substance: UPADACITINIB
     Indication: Rheumatoid arthritis
     Route: 048
     Dates: start: 20230204, end: 20240622
  2. RINVOQ [Suspect]
     Active Substance: UPADACITINIB
     Indication: Rheumatoid arthritis
     Dosage: FIRST ADMIN DATE: 2024
     Route: 048
     Dates: end: 20240717

REACTIONS (2)
  - Limb operation [Recovering/Resolving]
  - Inflammation [Unknown]

NARRATIVE: CASE EVENT DATE: 20240627
